FAERS Safety Report 10598323 (Version 1)
Quarter: 2014Q4

REPORT INFORMATION
  Report Type: Report from Study
  Country: US (occurrence: None)
  Receive Date: 20141113
  Receipt Date: 20141113
  Transmission Date: 20150529
  Serious: Yes (Hospitalization, Other)
  Sender: FDA-Public Use
  Company Number: B0685709A

PATIENT
  Age: 50 Year
  Sex: Male
  Weight: 107.5 kg

DRUGS (12)
  1. LOPID ( GEMFIBROZIL) [Concomitant]
  2. VITAMIN D ( VITAMIN D NOS) [Concomitant]
  3. NIACIN ( NICOTINIC ACID) [Concomitant]
  4. PLAVIX ( CLOPIDOGREL BISULFATE) [Concomitant]
  5. LEXAPRO ( ESCITALOPRAM OXALATE) [Concomitant]
  6. PRILOSEC ( OMEPRAZOLE) [Concomitant]
  7. MARAVIROC [Suspect]
     Active Substance: MARAVIROC
     Indication: HIV INFECTION
     Dosage: 150 MG, 2D
     Dates: start: 20090909
  8. DARUNAVIR [Concomitant]
     Active Substance: DARUNAVIR
  9. EPZICOM ( ABACAVIR + LAMIVUDINE) [Concomitant]
  10. FLUCONAZOLE. [Concomitant]
     Active Substance: FLUCONAZOLE
  11. RITONAVIR. [Concomitant]
     Active Substance: RITONAVIR
  12. PRAVACHOL ( PRAVASTATIN SODIUM) [Concomitant]

REACTIONS (2)
  - Femoral artery occlusion [None]
  - Arterial stent insertion [None]

NARRATIVE: CASE EVENT DATE: 20101011
